FAERS Safety Report 20224701 (Version 2)
Quarter: 2022Q1

REPORT INFORMATION
  Report Type: Spontaneous
  Country: FR (occurrence: FR)
  Receive Date: 20211223
  Receipt Date: 20220107
  Transmission Date: 20220423
  Serious: Yes (Other)
  Sender: FDA-Public Use
  Company Number: FR-TEVA-2021-FR-1989560

PATIENT
  Age: 68 Year
  Sex: Male

DRUGS (2)
  1. COTRIMOXAZOLE [Suspect]
     Active Substance: SULFAMETHOXAZOLE\TRIMETHOPRIM
     Indication: Product used for unknown indication
     Route: 065
  2. CLOBETASOL [Suspect]
     Active Substance: CLOBETASOL
     Dosage: 30 GRAM DAILY;
     Route: 061

REACTIONS (5)
  - Drug reaction with eosinophilia and systemic symptoms [Recovered/Resolved]
  - Diabetes mellitus [Unknown]
  - Hypothyroidism [Unknown]
  - Depression [Unknown]
  - Drug ineffective [Unknown]
